FAERS Safety Report 7918454-2 (Version None)
Quarter: 2011Q4

REPORT INFORMATION
  Report Type: 
  Country: None (occurrence: None)
  Receive Date: 20111116
  Receipt Date: 20111108
  Transmission Date: 20120403
  Serious: Yes (Hospitalization)
  Sender: FDA-Public Use
  Company Number: PHHO2011US019011

PATIENT
  Sex: Female
  Weight: 180 kg

DRUGS (11)
  1. ATIVAN [Concomitant]
     Dosage: 1 MG, BID
  2. TAXOL [Concomitant]
     Dosage: 60 MG/M2, QW
     Dates: end: 20111102
  3. OXYCODONE HCL [Concomitant]
     Dosage: 40 MG, Q4H
  4. SYNTHROID [Concomitant]
     Dosage: 0.075 UG, QD
  5. PAXIL [Concomitant]
     Dosage: 40 MG, QD
  6. DOLGIC LQ [Concomitant]
  7. OXYCONTIN [Concomitant]
     Dosage: 60 MG, Q12H
  8. ZOFRAN [Concomitant]
     Dosage: 8 MG, Q6H
  9. AFINITOR [Suspect]
     Indication: BREAST CANCER METASTATIC
     Dosage: 5 MG, QD
     Route: 048
     Dates: start: 20110610, end: 20111006
  10. AFINITOR [Suspect]
     Dosage: 2.5 MG, QD
     Route: 048
     Dates: start: 20111018, end: 20111106
  11. AUGMENTIN [Concomitant]
     Dosage: UNK
     Dates: start: 20111104

REACTIONS (1)
  - HYDROCEPHALUS [None]
